FAERS Safety Report 20001130 (Version 1)
Quarter: 2021Q4

REPORT INFORMATION
  Report Type: Other
  Country: ES (occurrence: ES)
  Receive Date: 20211027
  Receipt Date: 20211027
  Transmission Date: 20220303
  Serious: Yes (Death, Other)
  Sender: FDA-Public Use
  Company Number: ES-BOEHRINGERINGELHEIM-2021-BI-132793

PATIENT
  Age: 45 Year
  Sex: Male

DRUGS (1)
  1. ALTEPLASE [Suspect]
     Active Substance: ALTEPLASE
     Indication: Cerebrovascular accident
     Route: 042

REACTIONS (7)
  - Death [Fatal]
  - Drug ineffective [Unknown]
  - Deep vein thrombosis [Unknown]
  - Intracardiac thrombus [Unknown]
  - Cardio-respiratory arrest [Unknown]
  - Pulmonary embolism [Unknown]
  - Contraindicated product administered [Unknown]
